FAERS Safety Report 8828588 (Version 1)
Quarter: 2012Q4

REPORT INFORMATION
  Report Type: 
  Country: US (occurrence: US)
  Receive Date: 20121005
  Receipt Date: 20121005
  Transmission Date: 20130627
  Serious: Yes (Life-Threatening, Hospitalization)
  Sender: FDA-Public Use
  Company Number: US-ROCHE-1136988

PATIENT
  Age: 40 None
  Sex: Male

DRUGS (4)
  1. RITUXAN [Suspect]
     Indication: ANAEMIA HAEMOLYTIC AUTOIMMUNE
     Route: 065
     Dates: start: 20070703, end: 20070703
  2. PREDNISONE [Concomitant]
  3. DANAZOL [Concomitant]
     Route: 065
  4. IVIG [Concomitant]

REACTIONS (8)
  - Respiratory arrest [Unknown]
  - Respiratory distress [Unknown]
  - Tachycardia [Unknown]
  - Hyperhidrosis [Unknown]
  - Pulse abnormal [Unknown]
  - Dyspnoea [Unknown]
  - Urinary incontinence [Unknown]
  - Faecal incontinence [Unknown]
